FAERS Safety Report 7725102-3 (Version None)
Quarter: 2011Q3

REPORT INFORMATION
  Report Type: 
  Country: None (occurrence: None)
  Receive Date: 20110901
  Receipt Date: 20110831
  Transmission Date: 20111222
  Serious: Yes (Other)
  Sender: FDA-Public Use
  Company Number: DK-PFIZER INC-2011038895

PATIENT
  Age: 55 Year
  Sex: Female
  Weight: 63.039 kg

DRUGS (1)
  1. VARENICLINE TARTRATE [Suspect]
     Indication: SMOKING CESSATION THERAPY
     Dosage: UNK
     Route: 048
     Dates: start: 20110121, end: 20110211

REACTIONS (12)
  - PSYCHOTIC DISORDER [None]
  - DELIRIUM [None]
  - AGGRESSION [None]
  - SLEEP DISORDER [None]
  - ANXIETY [None]
  - OBSESSIVE THOUGHTS [None]
  - NAUSEA [None]
  - SUICIDAL IDEATION [None]
  - DEPRESSION [None]
  - ABNORMAL DREAMS [None]
  - PARANOIA [None]
  - HALLUCINATION [None]
